FAERS Safety Report 20439263 (Version 1)
Quarter: 2022Q1

REPORT INFORMATION
  Report Type: Spontaneous
  Country: US (occurrence: None)
  Receive Date: 20220204
  Receipt Date: 20220204
  Transmission Date: 20220423
  Serious: Yes (Hospitalization)
  Sender: FDA-Public Use
  Company Number: None

PATIENT
  Sex: Male
  Weight: 78.93 kg

DRUGS (14)
  1. ERLEADA [Suspect]
     Active Substance: APALUTAMIDE
     Indication: Prostate cancer
     Dosage: FREQUENCY : DAILY;?
     Route: 048
     Dates: start: 202109
  2. AMLODIPINE [Concomitant]
     Active Substance: AMLODIPINE BESYLATE
  3. ASPIRIN [Concomitant]
     Active Substance: ASPIRIN
  4. FLOMAX [Concomitant]
     Active Substance: TAMSULOSIN HYDROCHLORIDE
  5. HYDROMORPHONE [Concomitant]
     Active Substance: HYDROMORPHONE
  6. ISOSORBIDE [Concomitant]
     Active Substance: ISOSORBIDE
  7. JANUVIA [Concomitant]
     Active Substance: SITAGLIPTIN PHOSPHATE
  8. LOSARTAN [Concomitant]
     Active Substance: LOSARTAN
  9. LYRICA [Suspect]
     Active Substance: PREGABALIN
  10. MODERNA COVID-19 VACCINE [Concomitant]
     Active Substance: ELASOMERAN
  11. OMEPRAZOLE [Concomitant]
     Active Substance: OMEPRAZOLE
  12. OXYBUTYNIN [Concomitant]
     Active Substance: OXYBUTYNIN
  13. SENNA LAXATIVE [Concomitant]
     Active Substance: SENNOSIDES
  14. VITAMIN D3 [Concomitant]
     Active Substance: CHOLECALCIFEROL

REACTIONS (2)
  - Pain [None]
  - Loss of personal independence in daily activities [None]
